FAERS Safety Report 4457601-4 (Version None)
Quarter: 2004Q3

REPORT INFORMATION
  Report Type: 
  Country: None (occurrence: None)
  Receive Date: 20040901
  Receipt Date: 20040709
  Transmission Date: 20050211
  Serious: No
  Sender: FDA-Public Use
  Company Number: FROV000210

PATIENT
  Age: 46 Year
  Sex: Female

DRUGS (4)
  1. FROVA [Suspect]
     Indication: MIGRAINE
     Dosage: 2.5 MG ORAL
     Route: 048
     Dates: start: 20040708
  2. ADVIL [Concomitant]
  3. IBUPROFEN [Concomitant]
  4. TYLENOL ARTHRITIS (TYLENOL ARTHRITIS) [Concomitant]

REACTIONS (2)
  - FATIGUE [None]
  - JAW DISORDER [None]
